FAERS Safety Report 11430947 (Version 1)
Quarter: 2015Q3

REPORT INFORMATION
  Report Type: Spontaneous
  Country: US (occurrence: US)
  Receive Date: 20150828
  Receipt Date: 20150828
  Transmission Date: 20151125
  Serious: No
  Sender: FDA-Public Use
  Company Number: US-BIOGENIDEC-2015BI118009

PATIENT
  Age: 29 Year
  Sex: Male

DRUGS (1)
  1. TECFIDERA [Suspect]
     Active Substance: DIMETHYL FUMARATE
     Indication: RELAPSING-REMITTING MULTIPLE SCLEROSIS
     Route: 048
     Dates: start: 20150424

REACTIONS (4)
  - Genital erythema [Recovered/Resolved]
  - Flushing [Recovered/Resolved]
  - Genital rash [Recovered/Resolved]
  - Genital pain [Recovered/Resolved]

NARRATIVE: CASE EVENT DATE: 201505
